FAERS Safety Report 6762251-0 (Version None)
Quarter: 2010Q2

REPORT INFORMATION
  Report Type: 
  Country: None (occurrence: None)
  Receive Date: 20100510
  Receipt Date: 20100427
  Transmission Date: 20101027
  Serious: Yes (Hospitalization, Other)
  Sender: FDA-Public Use
  Company Number: AEUSA201000094

PATIENT
  Age: 13 Year
  Sex: Female
  Weight: 57 kg

DRUGS (8)
  1. GAMUNEX [Suspect]
     Indication: VIRAL INFECTION
     Dosage: 30 GM;QD;IV
     Route: 042
     Dates: start: 20100311, end: 20100311
  2. GAMUNEX [Suspect]
     Indication: VIRAL INFECTION
     Dosage: 30 GM;QD;IV
     Route: 042
     Dates: start: 20100318, end: 20100318
  3. FLUCONAZOLE [Concomitant]
  4. GRANISETRON [Concomitant]
  5. METHADONE [Concomitant]
  6. METHYLPREDNISOLONE [Concomitant]
  7. LORAZEPAM [Concomitant]
  8. ESCITALOPRAM [Concomitant]

REACTIONS (2)
  - ANTIBODY TEST POSITIVE [None]
  - HAEMOLYSIS [None]
